FAERS Safety Report 6247648-X (Version None)
Quarter: 2009Q2

REPORT INFORMATION
  Report Type: 
  Country: None (occurrence: None)
  Receive Date: 20090626
  Receipt Date: 20090615
  Transmission Date: 20091009
  Serious: Yes (Hospitalization)
  Sender: FDA-Public Use
  Company Number: ES-ELI_LILLY_AND_COMPANY-ES200906004194

PATIENT
  Age: 77 Year
  Sex: Female

DRUGS (4)
  1. FORTEO [Suspect]
     Indication: OSTEOPOROSIS
     Dosage: 20 UG, UNK
     Route: 058
     Dates: start: 20080601
  2. DOBUPAL [Concomitant]
     Indication: AMNESIA
  3. PENTOXIFYLLINE [Concomitant]
     Indication: AMNESIA
  4. PAROXETINE HCL [Concomitant]
     Indication: DEPRESSION

REACTIONS (3)
  - FALL [None]
  - HEPATITIS [None]
  - WOUND [None]
